FAERS Safety Report 18968528 (Version 2)
Quarter: 2021Q1

REPORT INFORMATION
  Report Type: Report from Study
  Country: SE (occurrence: SE)
  Receive Date: 20210304
  Receipt Date: 20210317
  Transmission Date: 20210420
  Serious: Yes (Other)
  Sender: FDA-Public Use
  Company Number: SE-ACCORD-218900

PATIENT
  Age: 5 Year
  Sex: Male

DRUGS (1)
  1. ETOPOSIDE. [Suspect]
     Active Substance: ETOPOSIDE
     Indication: HAEMOPHAGOCYTIC LYMPHOHISTIOCYTOSIS
     Dosage: 50?100 MG/M2 ONCE WEEKLY (50 MG/M2 X 2, 100 MG/M2 X 7)
     Route: 042

REACTIONS (1)
  - Neutropenic sepsis [Recovered/Resolved]
